FAERS Safety Report 4351156-0 (Version None)
Quarter: 2004Q2

REPORT INFORMATION
  Report Type: 
  Country: None (occurrence: None)
  Receive Date: 20040428
  Receipt Date: 20030605
  Transmission Date: 20050107
  Serious: Yes (Hospitalization)
  Sender: FDA-Public Use
  Company Number: NSADSS2001028317

PATIENT
  Age: 22 Year
  Sex: Female

DRUGS (2)
  1. ULTRAM [Suspect]
     Indication: PAIN
     Dosage: 100 MG, ORAL
     Route: 048
     Dates: start: 20010908, end: 20010908
  2. ORAL CONTRACEPTIVE NOS (TABLETS) ORAL CONTRACEPTIVE NOS [Concomitant]

REACTIONS (1)
  - CONVULSION [None]
